FAERS Safety Report 17117533 (Version 1)
Quarter: 2019Q4

REPORT INFORMATION
  Report Type: Spontaneous
  Country: IT (occurrence: IT)
  Receive Date: 20191205
  Receipt Date: 20191205
  Transmission Date: 20200122
  Serious: Yes (Hospitalization)
  Sender: FDA-Public Use
  Company Number: IT-MYLANLABS-2019M1119219

PATIENT
  Age: 80 Year
  Sex: Female

DRUGS (1)
  1. ALLOPURINOL. [Suspect]
     Active Substance: ALLOPURINOL
     Indication: HYPERURICAEMIA
     Dosage: 150 MILLIGRAM, QD
     Dates: start: 20190527, end: 20190708

REACTIONS (3)
  - Toxic skin eruption [Recovering/Resolving]
  - Skin exfoliation [Recovering/Resolving]
  - Scab [Recovering/Resolving]

NARRATIVE: CASE EVENT DATE: 20190601
